FAERS Safety Report 10215411 (Version 1)
Quarter: 2014Q2

REPORT INFORMATION
  Report Type: Spontaneous
  Country: US (occurrence: US)
  Receive Date: 20140604
  Receipt Date: 20140604
  Transmission Date: 20141212
  Serious: Yes (Other)
  Sender: FDA-Public Use
  Company Number: US-JNJCP-30000221737

PATIENT
  Sex: Male

DRUGS (1)
  1. NEUTROGENA BEACH DEFENSE WATER SUN BARRIER SPRAY SUNSCREEN SPF 7 0 [Suspect]
     Indication: PROPHYLAXIS
     Route: 061

REACTIONS (4)
  - Application site rash [Unknown]
  - Dyspnoea [Unknown]
  - Dizziness [Unknown]
  - Hypersensitivity [None]
